FAERS Safety Report 22138953 (Version 1)
Quarter: 2023Q1

REPORT INFORMATION
  Report Type: Report from Study
  Country: US (occurrence: US)
  Receive Date: 20230327
  Receipt Date: 20230327
  Transmission Date: 20230417
  Serious: No
  Sender: FDA-Public Use
  Company Number: US-ETON PHARMACEUTICALS, INC-2023ETO000060

PATIENT

DRUGS (2)
  1. ALKINDI SPRINKLE [Suspect]
     Active Substance: HYDROCORTISONE
     Indication: Adrenal disorder
     Dosage: 2 MILLIGRAM
     Route: 048
     Dates: start: 20230304
  2. ALKINDI SPRINKLE [Suspect]
     Active Substance: HYDROCORTISONE
     Dosage: 1 MILLIGRAM
     Route: 048
     Dates: start: 20230304

REACTIONS (3)
  - Infantile spitting up [Unknown]
  - Incorrect dose administered [Unknown]
  - Product use complaint [Unknown]
